FAERS Safety Report 12218110 (Version 1)
Quarter: 2016Q1

REPORT INFORMATION
  Report Type: Report from Study
  Country: GR (occurrence: GR)
  Receive Date: 20160329
  Receipt Date: 20160329
  Transmission Date: 20160526
  Serious: Yes (Hospitalization, Disabling)
  Sender: FDA-Public Use
  Company Number: PHHO2016GR004183

PATIENT
  Age: 75 Year
  Sex: Male
  Weight: 67 kg

DRUGS (4)
  1. GEMCITABINE [Suspect]
     Active Substance: GEMCITABINE\GEMCITABINE HYDROCHLORIDE
     Indication: CHOLANGIOCARCINOMA
     Dosage: 1800 D1/8Q3W
     Route: 042
     Dates: start: 20160229, end: 20160229
  2. PAZOPANIB [Suspect]
     Active Substance: PAZOPANIB
     Indication: CHOLANGIOCARCINOMA
     Dosage: 800 DAILY
     Route: 048
     Dates: start: 20160229, end: 20160306
  3. LIPIDIL [Concomitant]
     Active Substance: FENOFIBRATE
     Indication: DYSLIPIDAEMIA
     Dosage: 145 DAILY
     Route: 048
     Dates: start: 2010
  4. OLARTAN [Concomitant]
     Indication: HYPERTENSION
     Dosage: 20 DAILY
     Route: 048
     Dates: start: 2015

REACTIONS (1)
  - Ischaemic stroke [Not Recovered/Not Resolved]

NARRATIVE: CASE EVENT DATE: 20160305
